FAERS Safety Report 5274854-3 (Version None)
Quarter: 2007Q1

REPORT INFORMATION
  Report Type: 
  Country: None (occurrence: None)
  Receive Date: 20061208
  Receipt Date: 20051208
  Transmission Date: 20070707
  Serious: No
  Sender: FDA-Public Use
  Company Number: 2005UW18476

PATIENT
  Age: 54 Year
  Sex: Male
  Weight: 97.2966 kg

DRUGS (3)
  1. CRESTOR [Suspect]
     Indication: HYPERCHOLESTEROLAEMIA
     Dosage: 20 MG DAILY PO
     Route: 048
     Dates: start: 20050801, end: 20051001
  2. SB-485232 GLAXOSMITHKLINE STUDY DRUG [Suspect]
     Indication: METASTATIC MALIGNANT MELANOMA
     Dosage: 8.66 MG DAILY IV
     Route: 042
     Dates: start: 20051003, end: 20051006
  3. HYZAAR [Suspect]

REACTIONS (1)
  - PANCREATITIS [None]
